FAERS Safety Report 22602121 (Version 1)
Quarter: 2023Q2

REPORT INFORMATION
  Report Type: Spontaneous
  Country: CH (occurrence: CH)
  Receive Date: 20230614
  Receipt Date: 20230614
  Transmission Date: 20230721
  Serious: Yes (Hospitalization)
  Sender: FDA-Public Use
  Company Number: CH-FreseniusKabi-FK202308652

PATIENT
  Age: 73 Year
  Sex: Male

DRUGS (5)
  1. ACETAMINOPHEN [Suspect]
     Active Substance: ACETAMINOPHEN
     Indication: Pain
  2. FLUCLOXACILLIN [Suspect]
     Active Substance: FLUCLOXACILLIN
     Indication: Endocarditis
  3. CIPROFLOXACIN [Concomitant]
     Active Substance: CIPROFLOXACIN
     Indication: Device related infection
  4. RIFAMPIN [Concomitant]
     Active Substance: RIFAMPIN
     Indication: Device related infection
  5. unspecified antibiotic therapy [Concomitant]
     Indication: Infection

REACTIONS (2)
  - Drug interaction [Unknown]
  - Pyroglutamic acidosis [Recovered/Resolved]
